FAERS Safety Report 5044553-1 (Version None)
Quarter: 2006Q2

REPORT INFORMATION
  Report Type: 
  Country: None (occurrence: None)
  Receive Date: 20060629
  Receipt Date: 20060616
  Transmission Date: 20061013
  Serious: Yes (Hospitalization, Other)
  Sender: FDA-Public Use
  Company Number: 2006064552

PATIENT
  Age: 23 Year
  Sex: Female
  Weight: 41 kg

DRUGS (2)
  1. VFEND [Suspect]
     Indication: FUNGAL INFECTION
     Dosage: 200 MG (200 MG, UNKNOWN), ORAL
     Route: 048
     Dates: start: 20060412, end: 20060413
  2. CHEMOTHERAPY NOS (CHEMOTHERAPY NOS) [Concomitant]

REACTIONS (5)
  - BODY TEMPERATURE INCREASED [None]
  - CHILLS [None]
  - TREMOR [None]
  - VISUAL DISTURBANCE [None]
  - VITREOUS FLOATERS [None]
